FAERS Safety Report 18968677 (Version 1)
Quarter: 2021Q1

REPORT INFORMATION
  Report Type: Report from Study
  Country: BG (occurrence: BG)
  Receive Date: 20210304
  Receipt Date: 20210304
  Transmission Date: 20210420
  Serious: Yes (Other)
  Sender: FDA-Public Use
  Company Number: BG-PFIZER INC-2021208197

PATIENT
  Age: 74 Year
  Sex: Female

DRUGS (2)
  1. MEDROL [Suspect]
     Active Substance: METHYLPREDNISOLONE
     Dosage: UNK
  2. REVOLADE [Suspect]
     Active Substance: ELTROMBOPAG OLAMINE
     Indication: IMMUNE THROMBOCYTOPENIA
     Dosage: 50 MG (2 X 25 MG), 1X/DAY (QD)
     Route: 048
     Dates: start: 20180909

REACTIONS (8)
  - Monocyte count increased [Unknown]
  - Alopecia [Not Recovered/Not Resolved]
  - Thrombocytopenia [Unknown]
  - Dermatitis atopic [Unknown]
  - Immature granulocyte count increased [Unknown]
  - Contusion [Not Recovered/Not Resolved]
  - Eosinophil count increased [Unknown]
  - White blood cell count increased [Unknown]

NARRATIVE: CASE EVENT DATE: 20210111
